FAERS Safety Report 10267292 (Version 2)
Quarter: 2015Q2

REPORT INFORMATION
  Report Type: Spontaneous
  Country: ES (occurrence: ES)
  Receive Date: 20140630
  Receipt Date: 20150402
  Transmission Date: 20150821
  Serious: Yes (Other)
  Sender: FDA-Public Use
  Company Number: ES-RANBAXY-2014R1-82921

PATIENT
  Age: 28 Year
  Sex: Female

DRUGS (2)
  1. FLUOXETINE [Suspect]
     Active Substance: FLUOXETINE\FLUOXETINE HYDROCHLORIDE
     Indication: PSYCHOTIC DISORDER
     Route: 065
  2. THIORIDAZINE [Suspect]
     Active Substance: THIORIDAZINE
     Indication: PSYCHOTIC DISORDER
     Route: 065

REACTIONS (2)
  - Periodontitis [Recovering/Resolving]
  - Dry mouth [Unknown]
